FAERS Safety Report 9277979 (Version 1)
Quarter: 2013Q2

REPORT INFORMATION
  Report Type: Spontaneous
  Country: US (occurrence: None)
  Receive Date: 20130503
  Receipt Date: 20130503
  Transmission Date: 20140414
  Serious: No
  Sender: FDA-Public Use
  Company Number: None

PATIENT
  Age: 59 Year
  Sex: Female

DRUGS (1)
  1. THALOMID [Suspect]
     Route: 048
     Dates: start: 20130312, end: 20130426

REACTIONS (5)
  - Headache [None]
  - Pyrexia [None]
  - Pulmonary arterial hypertension [None]
  - Fluid retention [None]
  - Rash generalised [None]
